FAERS Safety Report 8220538-9 (Version None)
Quarter: 2012Q1

REPORT INFORMATION
  Report Type: 
  Country: None (occurrence: None)
  Receive Date: 20120316
  Receipt Date: 20120307
  Transmission Date: 20120608
  Serious: Yes (Hospitalization)
  Sender: FDA-Public Use
  Company Number: TPA2012A01289

PATIENT
  Age: 50 Year
  Sex: Female

DRUGS (1)
  1. EDARBYCLOR [Suspect]
     Indication: HYPERTENSION
     Dosage: 40 MG/25 MG QD, PER ORAL
     Route: 048

REACTIONS (3)
  - NAUSEA [None]
  - INCONTINENCE [None]
  - SYNCOPE [None]
